FAERS Safety Report 10865696 (Version 3)
Quarter: 2015Q1

REPORT INFORMATION
  Report Type: Spontaneous
  Country: US (occurrence: US)
  Receive Date: 20150224
  Receipt Date: 20150310
  Transmission Date: 20150721
  Serious: Yes (Hospitalization)
  Sender: FDA-Public Use
  Company Number: US-GLAXOSMITHKLINE-A1011924A

PATIENT
  Sex: Female

DRUGS (2)
  1. ADVAIR DISKUS [Suspect]
     Active Substance: FLUTICASONE PROPIONATE\SALMETEROL XINAFOATE
     Indication: PRODUCT USED FOR UNKNOWN INDICATION
     Dosage: 250/50
     Route: 065
     Dates: start: 20120223
  2. ADVAIR DISKUS [Suspect]
     Active Substance: FLUTICASONE PROPIONATE\SALMETEROL XINAFOATE
     Indication: ASTHMA
     Dosage: 250 ?G, UNK
     Route: 055

REACTIONS (8)
  - Fatigue [Unknown]
  - Viral infection [Unknown]
  - Ligament sprain [Unknown]
  - Incorrect dose administered [Unknown]
  - Drug dose omission [Unknown]
  - Intentional product misuse [Unknown]
  - Asthenia [Unknown]
  - Pharyngeal oedema [Unknown]
